FAERS Safety Report 7658561-5 (Version None)
Quarter: 2011Q3

REPORT INFORMATION
  Report Type: 
  Country: None (occurrence: None)
  Receive Date: 20110802
  Receipt Date: 20110719
  Transmission Date: 20111222
  Serious: Yes (Hospitalization)
  Sender: FDA-Public Use
  Company Number: FK201101439

PATIENT
  Age: 66 Year
  Sex: Male

DRUGS (5)
  1. FLUOROURACIL [Suspect]
     Indication: OESOPHAGEAL CARCINOMA
  2. OXALIPLATIN [Suspect]
     Indication: OESOPHAGEAL CARCINOMA
     Dosage: CYCLICAL, INTRAVENOUS (NOT OTHERWISE SPECIFIED)
     Route: 042
     Dates: start: 20110425, end: 20110425
  3. OXALIPLATIN [Suspect]
     Indication: OESOPHAGEAL CARCINOMA
     Dosage: CYCLICAL, INTRAVENOUS (NOT OTHERWISE SPECIFIED)
     Route: 042
     Dates: start: 20110509, end: 20110509
  4. OXALIPLATIN [Suspect]
     Indication: OESOPHAGEAL CARCINOMA
     Dosage: CYCLICAL, INTRAVENOUS (NOT OTHERWISE SPECIFIED)
     Route: 042
     Dates: start: 20110523, end: 20110523
  5. THERAPEUTIC RADIIOPHARMACEUTICALS (THERAPEUTIC RADIOPHARMACEUTICALS) ( [Suspect]

REACTIONS (19)
  - ABDOMINAL PAIN [None]
  - DECREASED APPETITE [None]
  - ASTHENIA [None]
  - EAR DISORDER [None]
  - VISUAL ACUITY REDUCED [None]
  - POLLAKIURIA [None]
  - FULL BLOOD COUNT DECREASED [None]
  - RECTAL SPASM [None]
  - FLUID INTAKE REDUCED [None]
  - BACK PAIN [None]
  - URINARY INCONTINENCE [None]
  - GASTROINTESTINAL PAIN [None]
  - FREQUENT BOWEL MOVEMENTS [None]
  - DIZZINESS [None]
  - FAECALOMA [None]
  - ABNORMAL FAECES [None]
  - HYPOPHAGIA [None]
  - HYPERACUSIS [None]
  - OESOPHAGEAL PAIN [None]
